FAERS Safety Report 9484388 (Version 2)
Quarter: 2013Q3

REPORT INFORMATION
  Report Type: Spontaneous
  Country: US (occurrence: US)
  Receive Date: 20130828
  Receipt Date: 20130828
  Transmission Date: 20140515
  Serious: Yes (Death, Hospitalization)
  Sender: FDA-Public Use
  Company Number: US-AMGEN-KDL383052

PATIENT
  Age: 60 Year
  Sex: Female

DRUGS (1)
  1. PROCRIT [Suspect]
     Indication: ANAEMIA OF MALIGNANT DISEASE
     Dosage: 40000 IU, QWK
     Route: 065
     Dates: end: 20090601

REACTIONS (10)
  - Neoplasm malignant [Fatal]
  - Cardio-respiratory arrest [Unknown]
  - Pleural effusion [Unknown]
  - Hyponatraemia [Unknown]
  - Malnutrition [Unknown]
  - Normochromic normocytic anaemia [Unknown]
  - Thrombocytosis [Unknown]
  - Leukocytosis [Unknown]
  - Dehydration [Unknown]
  - Cardiac failure congestive [Unknown]
